FAERS Safety Report 25637173 (Version 1)
Quarter: 2025Q3

REPORT INFORMATION
  Report Type: Spontaneous
  Country: US (occurrence: US)
  Receive Date: 20250804
  Receipt Date: 20250804
  Transmission Date: 20251021
  Serious: Yes (Hospitalization)
  Sender: CATALYST PHARMA
  Company Number: US-CATALYST PHARMACEUTICALS-US-CATA-25-00840

PATIENT
  Sex: Male
  Weight: 16.5 kg

DRUGS (3)
  1. AGAMREE [Suspect]
     Active Substance: VAMOROLONE
     Indication: Duchenne muscular dystrophy
     Dosage: 2.5 ML ONCE A DAY
     Route: 048
     Dates: start: 20250222
  2. FAMOTIDINE [Concomitant]
     Active Substance: FAMOTIDINE
     Indication: Gastrointestinal disorder prophylaxis
     Dosage: TWICE A DAY
     Route: 065
  3. VYONDYS [Concomitant]
     Indication: Duchenne muscular dystrophy
     Dosage: WEEKLY
     Route: 065

REACTIONS (5)
  - Tachycardia [Unknown]
  - Pyrexia [Not Recovered/Not Resolved]
  - Nasopharyngitis [Not Recovered/Not Resolved]
  - Weight decreased [Not Recovered/Not Resolved]
  - Dyspnoea [Not Recovered/Not Resolved]

NARRATIVE: CASE EVENT DATE: 20250101
